FAERS Safety Report 8830733 (Version 1)
Quarter: 2012Q4

REPORT INFORMATION
  Report Type: 
  Country: US (occurrence: US)
  Receive Date: 20121008
  Receipt Date: 20121008
  Transmission Date: 20130627
  Serious: No
  Sender: FDA-Public Use
  Company Number: US-009507513-1210USA000373

PATIENT
  Sex: Female

DRUGS (2)
  1. VICTRELIS [Suspect]
     Indication: HEPATITIS C
     Dosage: 800 mg, tid
     Route: 048
     Dates: start: 20120220
  2. PEG-INTRON [Suspect]
     Dosage: 108 mcg, qw
     Route: 058

REACTIONS (2)
  - Memory impairment [Unknown]
  - Insomnia [Unknown]
